FAERS Safety Report 6370011-8 (Version None)
Quarter: 2009Q3

REPORT INFORMATION
  Report Type: 
  Country: None (occurrence: None)
  Receive Date: 20090923
  Receipt Date: 20071112
  Transmission Date: 20100115
  Serious: No
  Sender: FDA-Public Use
  Company Number: US-ASTRAZENECA-2006UW09028

PATIENT
  Age: 14943 Day
  Sex: Male
  Weight: 162.4 kg

DRUGS (28)
  1. SEROQUEL [Suspect]
     Indication: SCHIZOPHRENIA
     Dosage: 100 TO 800 MG
     Route: 048
     Dates: start: 19970915, end: 20021001
  2. SEROQUEL [Suspect]
     Indication: DEPRESSION
     Dosage: 100 TO 800 MG
     Route: 048
     Dates: start: 19970915, end: 20021001
  3. RISPERDAL [Suspect]
     Indication: SCHIZOPHRENIA
     Dates: start: 19951101, end: 19970101
  4. ZYPREXA [Suspect]
     Indication: SCHIZOPHRENIA
     Dates: start: 19970101, end: 19970901
  5. PROZAC [Concomitant]
  6. TIOTIXENE [Concomitant]
  7. PRILOSEC [Concomitant]
  8. DITROPAN [Concomitant]
  9. ZOLOFT [Concomitant]
  10. GEODON [Concomitant]
  11. ABILIFY [Concomitant]
  12. LITHIUM [Concomitant]
  13. HALOPERIDOL [Concomitant]
  14. METFORMIN HCL [Concomitant]
  15. GLYBURIDE [Concomitant]
  16. ACTOS [Concomitant]
  17. LISINOPRIL [Concomitant]
  18. HYDROCHLOROTHIAZIDE [Concomitant]
  19. TRICOR [Concomitant]
  20. METOPROLOL TARTRATE [Concomitant]
  21. ELOCON [Concomitant]
  22. VESICARE [Concomitant]
  23. ETODOLAC [Concomitant]
  24. PREVACID [Concomitant]
  25. FUROSEMIDE [Concomitant]
  26. PENLAC [Concomitant]
  27. OMACOR [Concomitant]
  28. LOVAZA [Concomitant]

REACTIONS (8)
  - CHEST PAIN [None]
  - CORONARY ARTERY DISEASE [None]
  - DIABETES MELLITUS [None]
  - DIZZINESS [None]
  - DYSPNOEA [None]
  - GASTROOESOPHAGEAL REFLUX DISEASE [None]
  - OBESITY [None]
  - POLLAKIURIA [None]
